FAERS Safety Report 7946879-8 (Version None)
Quarter: 2011Q4

REPORT INFORMATION
  Report Type: 
  Country: None (occurrence: None)
  Receive Date: 20111129
  Receipt Date: 20111118
  Transmission Date: 20120403
  Serious: Yes (Other)
  Sender: FDA-Public Use
  Company Number: CA-BAXTER-2011BH028500

PATIENT
  Age: 59 Year
  Sex: Female
  Weight: 69 kg

DRUGS (2)
  1. DIANEAL [Suspect]
     Indication: PERITONEAL DIALYSIS
     Route: 033
     Dates: start: 20110509
  2. EXTRANEAL [Suspect]
     Indication: PERITONEAL DIALYSIS
     Route: 033
     Dates: start: 20110509, end: 20110529

REACTIONS (7)
  - VOMITING [None]
  - RASH [None]
  - OEDEMA PERIPHERAL [None]
  - BLOOD DISORDER [None]
  - NAIL DISORDER [None]
  - PRURITUS [None]
  - BLOOD UREA INCREASED [None]
